FAERS Safety Report 11749902 (Version 1)
Quarter: 2015Q4

REPORT INFORMATION
  Report Type: Spontaneous
  Country: US (occurrence: None)
  Receive Date: 20151117
  Receipt Date: 20151117
  Transmission Date: 20160304
  Serious: Yes (Life-Threatening, Hospitalization)
  Sender: FDA-Public Use
  Company Number: None

PATIENT
  Age: 37 Year
  Sex: Female
  Weight: 52 kg

DRUGS (3)
  1. COQ10 [Concomitant]
     Active Substance: UBIDECARENONE
  2. BRAVELLE [Suspect]
     Active Substance: FOLLITROPIN\UROFOLLITROPIN
  3. DHEA [Concomitant]
     Active Substance: PRASTERONE

REACTIONS (4)
  - Diabetic ketoacidosis [None]
  - Pancreatitis acute [None]
  - Insulin resistance [None]
  - Diabetes mellitus [None]

NARRATIVE: CASE EVENT DATE: 20150727
